FAERS Safety Report 10606643 (Version 4)
Quarter: 2015Q4

REPORT INFORMATION
  Report Type: Spontaneous
  Country: GB (occurrence: GB)
  Receive Date: 20141125
  Receipt Date: 20151204
  Transmission Date: 20160304
  Serious: Yes (Hospitalization, Other)
  Sender: FDA-Public Use
  Company Number: GB-AMGEN-GBRSP2014089774

PATIENT
  Age: 0 Day
  Sex: Female

DRUGS (8)
  1. ARANESP [Suspect]
     Active Substance: DARBEPOETIN ALFA
     Indication: EXPOSURE DURING PREGNANCY
     Dosage: 40 MUG, QWK
     Route: 064
     Dates: start: 20140202, end: 20150224
  2. SODIUM BICARBONATE. [Concomitant]
     Active Substance: SODIUM BICARBONATE
     Indication: EXPOSURE DURING PREGNANCY
     Dosage: 500 MG, BID
     Route: 064
     Dates: start: 20140816
  3. ABIDEC                             /00266401/ [Concomitant]
     Dosage: 06 ML, QD
     Route: 048
     Dates: start: 2014
  4. TACROLIMUS. [Concomitant]
     Active Substance: TACROLIMUS
     Indication: EXPOSURE DURING PREGNANCY
     Dosage: 6/5.5UNK, BID
     Route: 064
     Dates: start: 20060425
  5. LABETALOL [Concomitant]
     Active Substance: LABETALOL\LABETALOL HYDROCHLORIDE
     Indication: EXPOSURE DURING BREAST FEEDING
     Dosage: 200 MG, BID
     Route: 063
     Dates: start: 20141116
  6. NIFEDIPINE. [Concomitant]
     Active Substance: NIFEDIPINE
     Indication: EXPOSURE DURING BREAST FEEDING
     Dosage: 40 MG, BID
     Route: 063
     Dates: start: 20141204
  7. RANITIDINE [Concomitant]
     Active Substance: RANITIDINE\RANITIDINE HYDROCHLORIDE
     Dosage: UNK UNK, QD
     Route: 048
     Dates: start: 2014
  8. AZATHIOPRINE. [Concomitant]
     Active Substance: AZATHIOPRINE
     Indication: EXPOSURE DURING PREGNANCY
     Dosage: 100 MG, QD
     Route: 064
     Dates: start: 20120620

REACTIONS (5)
  - Breast feeding [Unknown]
  - Respiratory distress [Unknown]
  - Anaemia [Unknown]
  - Premature baby [Unknown]
  - Gastrooesophageal reflux disease [Recovering/Resolving]

NARRATIVE: CASE EVENT DATE: 20141016
